FAERS Safety Report 6114157-8 (Version None)
Quarter: 2009Q1

REPORT INFORMATION
  Report Type: 
  Country: None (occurrence: None)
  Receive Date: 20090312
  Receipt Date: 20080413
  Transmission Date: 20090719
  Serious: No
  Sender: FDA-Public Use
  Company Number: US-ABBOTT-08P-163-0447044-00

PATIENT
  Age: 32 Year
  Sex: Female
  Weight: 80.358 kg

DRUGS (3)
  1. DEPAKOTE [Suspect]
     Indication: BIPOLAR DISORDER
     Route: 048
     Dates: start: 20080323
  2. SERTRALINE [Concomitant]
     Indication: BIPOLAR DISORDER
     Route: 048
     Dates: start: 19960101
  3. RISPERDAL [Concomitant]
     Indication: BIPOLAR DISORDER
     Route: 048
     Dates: start: 20080320

REACTIONS (3)
  - FATIGUE [None]
  - FLATULENCE [None]
  - WEIGHT INCREASED [None]
